FAERS Safety Report 6971069-5 (Version None)
Quarter: 2010Q3

REPORT INFORMATION
  Report Type: 
  Country: None (occurrence: None)
  Receive Date: 20100908
  Receipt Date: 20100727
  Transmission Date: 20110219
  Serious: Yes (Death, Hospitalization, Other)
  Sender: FDA-Public Use
  Company Number: US-BAXTER-2010BH000456

PATIENT
  Age: 76 Year
  Sex: Male

DRUGS (1)
  1. HEPARIN SODIUM INJECTION [Suspect]
     Indication: HAEMODIALYSIS
     Route: 010
     Dates: start: 20070701, end: 20080101

REACTIONS (10)
  - ASTHENIA [None]
  - CARDIAC ARREST [None]
  - CHEST PAIN [None]
  - DIABETES MELLITUS [None]
  - DISORIENTATION [None]
  - DYSPNOEA [None]
  - HYPOTENSION [None]
  - OEDEMA [None]
  - RENAL FAILURE [None]
  - SHOCK [None]
